FAERS Safety Report 24332992 (Version 1)
Quarter: 2024Q3

REPORT INFORMATION
  Report Type: Spontaneous
  Country: CH (occurrence: CH)
  Receive Date: 20240918
  Receipt Date: 20240918
  Transmission Date: 20241017
  Serious: No
  Sender: BLUEPRINT MEDICINES
  Company Number: CH-Blueprint Medicines Corporation-SP-CH-2024-001866

PATIENT

DRUGS (2)
  1. AVAPRITINIB [Suspect]
     Active Substance: AVAPRITINIB
     Route: 065
  2. AVAPRITINIB [Suspect]
     Active Substance: AVAPRITINIB

REACTIONS (1)
  - Periorbital oedema [Unknown]
